FAERS Safety Report 6869555-1 (Version None)
Quarter: 2010Q3

REPORT INFORMATION
  Report Type: 
  Country: None (occurrence: None)
  Receive Date: 20100722
  Receipt Date: 20080812
  Transmission Date: 20110219
  Serious: No
  Sender: FDA-Public Use
  Company Number: US-PFIZER INC-2008068518

PATIENT
  Sex: Male
  Weight: 59.5 kg

DRUGS (4)
  1. CHANTIX [Suspect]
     Indication: SMOKING CESSATION THERAPY
     Dates: start: 20080806
  2. LOPRESSOR [Concomitant]
  3. CYMBALTA [Concomitant]
  4. PLAVIX [Concomitant]

REACTIONS (4)
  - ABNORMAL DREAMS [None]
  - INSOMNIA [None]
  - SOMNAMBULISM [None]
  - SOMNOLENCE [None]
